FAERS Safety Report 15778505 (Version 2)
Quarter: 2019Q1

REPORT INFORMATION
  Report Type: Report from Study
  Country: US (occurrence: US)
  Receive Date: 20181231
  Receipt Date: 20190110
  Transmission Date: 20190417
  Serious: Yes (Death, Hospitalization, Other)
  Sender: FDA-Public Use
  Company Number: US-ACTELION-A-NJ2017-150270

PATIENT
  Age: 78 Year
  Sex: Male

DRUGS (2)
  1. TRACLEER [Concomitant]
     Active Substance: BOSENTAN
     Indication: PULMONARY ARTERIAL HYPERTENSION
     Dosage: UNK
     Dates: start: 20120619, end: 20160217
  2. OPSUMIT [Suspect]
     Active Substance: MACITENTAN
     Indication: PULMONARY HYPERTENSION
     Dosage: 10 MG, QD
     Route: 048
     Dates: start: 20160217, end: 20181218

REACTIONS (30)
  - Red blood cell count decreased [Recovering/Resolving]
  - Hypoxia [Recovered/Resolved with Sequelae]
  - Lumbar spinal stenosis [Recovered/Resolved]
  - Rectal prolapse [Recovered/Resolved]
  - End stage renal disease [Fatal]
  - Oedema [Recovered/Resolved]
  - Cardiac failure congestive [Recovered/Resolved with Sequelae]
  - Intervertebral disc operation [Recovered/Resolved]
  - Sputum discoloured [Recovered/Resolved]
  - Fatigue [Recovered/Resolved with Sequelae]
  - Rectal prolapse repair [Recovered/Resolved]
  - Mitral valve repair [Recovered/Resolved]
  - Unevaluable event [Not Recovered/Not Resolved]
  - Chills [Recovered/Resolved]
  - Bronchitis [Recovered/Resolved]
  - Hospice care [Unknown]
  - Coronary artery bypass [Recovered/Resolved]
  - Haemoglobin decreased [Recovering/Resolving]
  - Pleural effusion [Recovered/Resolved]
  - Fibrin D dimer increased [Recovered/Resolved with Sequelae]
  - Melaena [Recovered/Resolved]
  - Productive cough [Recovered/Resolved]
  - Coronary artery disease [Recovered/Resolved]
  - Gastrointestinal haemorrhage [Recovered/Resolved]
  - Anaemia [Recovering/Resolving]
  - Transfusion [Unknown]
  - Atrial fibrillation [Not Recovered/Not Resolved]
  - Dyspnoea [Recovered/Resolved with Sequelae]
  - Spinal laminectomy [Recovered/Resolved]
  - Mitral valve incompetence [Recovered/Resolved]

NARRATIVE: CASE EVENT DATE: 2016
